FAERS Safety Report 8349723-2 (Version None)
Quarter: 2012Q2

REPORT INFORMATION
  Report Type: 
  Country: None (occurrence: None)
  Receive Date: 20120510
  Receipt Date: 20120306
  Transmission Date: 20120825
  Serious: No
  Sender: FDA-Public Use
  Company Number: US-ABBOTT-12P-163-0912358-00

PATIENT
  Sex: Female

DRUGS (2)
  1. NORVIR [Suspect]
     Indication: HIV INFECTION
     Dates: start: 20120101
  2. NORVIR [Suspect]
     Dosage: PLAN TO SWITCH TO SOFT GELATIN CAPSULES

REACTIONS (4)
  - PRODUCT SIZE ISSUE [None]
  - DRUG INTOLERANCE [None]
  - CHOKING [None]
  - REGURGITATION [None]
